FAERS Safety Report 5010457-3 (Version None)
Quarter: 2006Q2

REPORT INFORMATION
  Report Type: 
  Country: None (occurrence: None)
  Receive Date: 20060523
  Receipt Date: 20060515
  Transmission Date: 20061013
  Serious: Yes (Hospitalization, Other)
  Sender: FDA-Public Use
  Company Number: 2006064408

PATIENT
  Age: 57 Year
  Sex: Female
  Weight: 95.2554 kg

DRUGS (4)
  1. ZOLOFT [Suspect]
     Indication: DEPRESSION
     Dosage: 200 MG (100 MG, 2 IN 1 D), ORAL
     Route: 048
     Dates: end: 20060301
  2. BENADRYL [Suspect]
     Indication: DIZZINESS
     Dosage: 100 MG (50 MG, 2 IN 1 D),
     Dates: start: 20060101
  3. BENADRYL [Suspect]
     Indication: NAUSEA
     Dosage: 100 MG (50 MG, 2 IN 1 D),
     Dates: start: 20060101
  4. ALL OTHER THERAPEUTIC PRODUCTS (ALL OTHER THERAPEUTIC PRODUCTS) [Suspect]
     Indication: ILL-DEFINED DISORDER

REACTIONS (13)
  - ABDOMINAL PAIN [None]
  - ANAEMIA [None]
  - BURNING SENSATION [None]
  - DIZZINESS [None]
  - DRUG WITHDRAWAL SYNDROME [None]
  - FEELING ABNORMAL [None]
  - GASTRIC ULCER HAEMORRHAGE [None]
  - MOTION SICKNESS [None]
  - NAUSEA [None]
  - ROAD TRAFFIC ACCIDENT [None]
  - SLEEP DISORDER [None]
  - SPONDYLITIS [None]
  - STAPHYLOCOCCAL INFECTION [None]
